FAERS Safety Report 7601210-2 (Version None)
Quarter: 2011Q3

REPORT INFORMATION
  Report Type: 
  Country: None (occurrence: None)
  Receive Date: 20110711
  Receipt Date: 20110701
  Transmission Date: 20111222
  Serious: Yes (Other)
  Sender: FDA-Public Use
  Company Number: FR-VIIV HEALTHCARE LIMITED-B0730774A

PATIENT
  Age: 44 Year
  Sex: Male
  Weight: 124 kg

DRUGS (4)
  1. VIRAMUNE [Concomitant]
     Indication: HIV INFECTION
     Route: 065
     Dates: start: 20081001
  2. CELSENTRI [Suspect]
     Indication: HIV INFECTION
     Dosage: 600MG PER DAY
     Route: 048
     Dates: start: 20090216
  3. ISENTRESS [Concomitant]
     Indication: HIV INFECTION
     Route: 065
     Dates: start: 20081001
  4. PAROXETINE HYDROCHLORIDE [Concomitant]
     Indication: PRODUCT USED FOR UNKNOWN INDICATION
     Route: 065
     Dates: start: 20060101

REACTIONS (2)
  - AMYOTROPHY [None]
  - BLOOD CREATINE PHOSPHOKINASE INCREASED [None]
